FAERS Safety Report 22211616 (Version 1)
Quarter: 2023Q2

REPORT INFORMATION
  Report Type: Spontaneous
  Country: US (occurrence: None)
  Receive Date: 20230413
  Receipt Date: 20230413
  Transmission Date: 20230722
  Serious: Yes (Other)
  Sender: FDA-Public Use
  Company Number: None

PATIENT
  Age: 39 Year
  Sex: Female

DRUGS (1)
  1. MYFEMBREE [Suspect]
     Active Substance: ESTRADIOL HEMIHYDRATE\NORETHINDRONE ACETATE\RELUGOLIX
     Indication: Endometriosis
     Dosage: FREQUENCY : DAILY;?
     Route: 048
     Dates: start: 20230317

REACTIONS (5)
  - Agitation [None]
  - Anxiety [None]
  - Libido decreased [None]
  - Migraine [None]
  - Premenstrual syndrome [None]

NARRATIVE: CASE EVENT DATE: 20230412
